FAERS Safety Report 11509743 (Version 1)
Quarter: 2015Q3

REPORT INFORMATION
  Report Type: Spontaneous
  Country: US (occurrence: US)
  Receive Date: 20150915
  Receipt Date: 20150915
  Transmission Date: 20151125
  Serious: No
  Sender: FDA-Public Use
  Company Number: US-JNJFOC-20150602111

PATIENT
  Age: 78 Year
  Sex: Female
  Weight: 56.7 kg

DRUGS (9)
  1. LISINOPRIL. [Concomitant]
     Active Substance: LISINOPRIL
     Indication: HYPERTENSION
     Route: 065
  2. HUMULIN INSULIN 70/30 [Concomitant]
     Indication: DIABETES MELLITUS
     Dosage: 45 + 30 UNITS DAILY
     Route: 065
  3. PRESCRIPTION MEDICATIONS UNSPECIFIED [Concomitant]
     Active Substance: UNSPECIFIED INGREDIENT
     Indication: SURGERY
     Route: 065
     Dates: start: 2015
  4. TYLENOL EXTRA STRENGTH [Suspect]
     Active Substance: ACETAMINOPHEN
     Indication: BACK PAIN
     Route: 048
     Dates: start: 20150601, end: 20150601
  5. TYLENOL ARTHRITIS PAIN [Concomitant]
     Active Substance: ACETAMINOPHEN
     Indication: ARTHRITIS
     Route: 065
     Dates: start: 2015
  6. METFORMIN [Concomitant]
     Active Substance: METFORMIN HYDROCHLORIDE
     Indication: DIABETES MELLITUS
     Route: 065
  7. ASPIRIN. [Concomitant]
     Active Substance: ASPIRIN
     Indication: CEREBROVASCULAR ACCIDENT PROPHYLAXIS
     Route: 065
  8. PRESCRIPTION MEDICATIONS UNSPECIFIED [Concomitant]
     Active Substance: UNSPECIFIED INGREDIENT
     Indication: SURGERY
     Route: 065
     Dates: start: 2015
  9. PRESCRIPTION MEDICATIONS UNSPECIFIED [Concomitant]
     Active Substance: UNSPECIFIED INGREDIENT
     Indication: MUSCLE RELAXANT THERAPY
     Route: 065

REACTIONS (2)
  - Wrong technique in product usage process [Unknown]
  - Choking [Recovered/Resolved]

NARRATIVE: CASE EVENT DATE: 20150601
